FAERS Safety Report 16116182 (Version 2)
Quarter: 2019Q2

REPORT INFORMATION
  Report Type: Spontaneous
  Country: US (occurrence: US)
  Receive Date: 20190326
  Receipt Date: 20190402
  Transmission Date: 20190711
  Serious: No
  Sender: FDA-Public Use
  Company Number: US-DRREDDYS-USA/USA/19/0108905

PATIENT
  Age: 60 Year
  Sex: Male

DRUGS (4)
  1. CEFAZOLIN [Concomitant]
     Active Substance: CEFAZOLIN
     Indication: GENERAL ANAESTHESIA
  2. BUPIVACAINE. [Concomitant]
     Active Substance: BUPIVACAINE
     Indication: GENERAL ANAESTHESIA
  3. FENTANYL. [Concomitant]
     Active Substance: FENTANYL
     Indication: GENERAL ANAESTHESIA
  4. PROPOFOL INJECTABLE EMULSION [Suspect]
     Active Substance: PROPOFOL
     Indication: GENERAL ANAESTHESIA
     Dosage: BOLUS DOSES
     Route: 065

REACTIONS (1)
  - Hair colour changes [Recovered/Resolved]
